FAERS Safety Report 4654587-4 (Version None)
Quarter: 2005Q2

REPORT INFORMATION
  Report Type: 
  Country: None (occurrence: None)
  Receive Date: 20050503
  Receipt Date: 20050503
  Transmission Date: 20051028
  Serious: Yes (Hospitalization)
  Sender: FDA-Public Use
  Company Number: None

PATIENT
  Age: 51 Year
  Sex: Male
  Weight: 100.6985 kg

DRUGS (2)
  1. PERCOCET [Suspect]
     Indication: PAIN
     Dosage: 5MG/325MG   1-2Q6H PRN    ORAL
     Route: 048
     Dates: start: 20041215, end: 20041224
  2. HYDROCHLOROTHIAZIDE [Suspect]
     Indication: HYPERTENSION
     Dosage: 25MG   QD   ORAL
     Route: 048
     Dates: start: 20041215, end: 20041215

REACTIONS (2)
  - ORTHOSTATIC HYPOTENSION [None]
  - SYNCOPE [None]
